FAERS Safety Report 6167850-5 (Version None)
Quarter: 2009Q2

REPORT INFORMATION
  Report Type: 
  Country: None (occurrence: None)
  Receive Date: 20090427
  Receipt Date: 20090420
  Transmission Date: 20091009
  Serious: Yes (Other)
  Sender: FDA-Public Use
  Company Number: US-TEVA-192330USA

PATIENT
  Age: 63 Year
  Sex: Male

DRUGS (4)
  1. CEFTRIAXONE [Suspect]
  2. DOXYCYCLINE [Suspect]
  3. MEROPENEM [Suspect]
  4. VANCOMYCIN HCL [Suspect]

REACTIONS (2)
  - DIARRHOEA [None]
  - STAPHYLOCOCCAL INFECTION [None]
